FAERS Safety Report 5211962-7 (Version None)
Quarter: 2007Q1

REPORT INFORMATION
  Report Type: 
  Country: None (occurrence: None)
  Receive Date: 20070118
  Receipt Date: 20070110
  Transmission Date: 20070707
  Serious: Yes (Other)
  Sender: FDA-Public Use
  Company Number: GB-GLAXOSMITHKLINE-B0448980A

PATIENT
  Sex: Female

DRUGS (1)
  1. AQUAFRESH EXTREME CLEAN TOOTHPASTE TUBE [Suspect]
     Indication: DENTAL CLEANING

REACTIONS (4)
  - COUGH [None]
  - DYSPNOEA [None]
  - SYNCOPE [None]
  - THROAT TIGHTNESS [None]
